FAERS Safety Report 4842309-3 (Version None)
Quarter: 2005Q4

REPORT INFORMATION
  Report Type: 
  Country: None (occurrence: None)
  Receive Date: 20051129
  Receipt Date: 20051116
  Transmission Date: 20060501
  Serious: Yes (Life-Threatening)
  Sender: FDA-Public Use
  Company Number: 2005157508

PATIENT
  Age: 80 Year
  Sex: Male

DRUGS (4)
  1. PHENYTOIN SODIUM [Suspect]
     Indication: STATUS EPILEPTICUS
     Dosage: 800 MG (1 D), INTRAVENOUS
     Route: 042
     Dates: start: 20051107, end: 20051107
  2. LACTULOSE [Concomitant]
  3. FYBOGEL              (ISPAGHULA) [Concomitant]
  4. MESALAMINE [Concomitant]

REACTIONS (2)
  - BRADYCARDIA [None]
  - HYPOTENSION [None]
